FAERS Safety Report 25365072 (Version 2)
Quarter: 2025Q2

REPORT INFORMATION
  Report Type: Report from Study
  Country: US (occurrence: US)
  Receive Date: 20250527
  Receipt Date: 20250602
  Transmission Date: 20250716
  Serious: No
  Sender: SANOFI AVENTIS
  Company Number: US-SA-2025SA149150

PATIENT
  Age: 72 Year
  Sex: Female

DRUGS (3)
  1. INSULIN GLARGINE\LIXISENATIDE [Suspect]
     Active Substance: INSULIN GLARGINE\LIXISENATIDE
     Indication: Blood glucose abnormal
     Dosage: 30 IU, BID
     Route: 058
  2. INSULIN GLARGINE\LIXISENATIDE [Suspect]
     Active Substance: INSULIN GLARGINE\LIXISENATIDE
     Indication: Diabetic neuropathy
  3. INSULIN GLARGINE\LIXISENATIDE [Suspect]
     Active Substance: INSULIN GLARGINE\LIXISENATIDE
     Indication: Type 2 diabetes mellitus

REACTIONS (1)
  - Off label use [Unknown]
